FAERS Safety Report 17099444 (Version 12)
Quarter: 2024Q2

REPORT INFORMATION
  Report Type: Spontaneous
  Country: US (occurrence: US)
  Receive Date: 20191202
  Receipt Date: 20240503
  Transmission Date: 20240716
  Serious: Yes (Other)
  Sender: FDA-Public Use
  Company Number: US-PFIZER INC-2019515805

PATIENT
  Age: 73 Year
  Sex: Male

DRUGS (1)
  1. XELJANZ XR [Suspect]
     Active Substance: TOFACITINIB CITRATE
     Dosage: 11 MG, 1X/DAY
     Route: 048

REACTIONS (6)
  - Deafness [Not Recovered/Not Resolved]
  - Oesophageal infection [Unknown]
  - Prostate cancer [Unknown]
  - Rash [Unknown]
  - Hypoacusis [Unknown]
  - Bladder disorder [Unknown]
